FAERS Safety Report 20956585 (Version 2)
Quarter: 2022Q2

REPORT INFORMATION
  Report Type: Spontaneous
  Country: US (occurrence: None)
  Receive Date: 20220614
  Receipt Date: 20220617
  Transmission Date: 20220721
  Serious: Yes (Other)
  Sender: FDA-Public Use
  Company Number: 2022A211330

PATIENT
  Age: 80 Year
  Sex: Male
  Weight: 73.9 kg

DRUGS (1)
  1. CILGAVIMAB\TIXAGEVIMAB [Suspect]
     Active Substance: CILGAVIMAB\TIXAGEVIMAB
     Indication: COVID-19 prophylaxis
     Dosage: 150.0MG ONCE/SINGLE ADMINISTRATION
     Route: 030
     Dates: start: 20220526, end: 20220526

REACTIONS (1)
  - Breakthrough COVID-19 [Recovering/Resolving]

NARRATIVE: CASE EVENT DATE: 20220604
